FAERS Safety Report 17237568 (Version 1)
Quarter: 2020Q1

REPORT INFORMATION
  Report Type: Report from Study
  Country: DE (occurrence: DE)
  Receive Date: 20200106
  Receipt Date: 20200106
  Transmission Date: 20200409
  Serious: Yes (Other)
  Sender: FDA-Public Use
  Company Number: DE-EMD SERONO-9138198

PATIENT
  Sex: Female

DRUGS (2)
  1. MAVENCLAD [Suspect]
     Active Substance: CLADRIBINE
     Indication: MULTIPLE SCLEROSIS
     Dosage: WEEK ONE THERAPY: TWO TABLETS ON DAY 1, THEN ONE TABLET ON DAYS 2 TO 5.
     Route: 048
     Dates: start: 20190731, end: 20190804
  2. MAVENCLAD [Suspect]
     Active Substance: CLADRIBINE
     Dosage: WEEK TWO THERAPY: TWO TABLETS ON DAY 1, THEN ONE TABLET ON DAYS 2 TO 5.
     Route: 048
     Dates: start: 20190828, end: 20190901

REACTIONS (1)
  - White blood cell count decreased [Not Recovered/Not Resolved]
